FAERS Safety Report 18368225 (Version 1)
Quarter: 2020Q4

REPORT INFORMATION
  Report Type: Spontaneous
  Country: JP (occurrence: JP)
  Receive Date: 20201009
  Receipt Date: 20201009
  Transmission Date: 20210114
  Serious: Yes (Other)
  Sender: FDA-Public Use
  Company Number: JP-009507513-2010JPN000173J

PATIENT
  Age: 47 Year
  Sex: Male
  Weight: 70 kg

DRUGS (1)
  1. CUBICIN [Suspect]
     Active Substance: DAPTOMYCIN
     Dosage: 420 MILLIGRAM, QD
     Route: 041
     Dates: start: 201808

REACTIONS (2)
  - Osteomyelitis [Unknown]
  - Hypersensitivity [Unknown]

NARRATIVE: CASE EVENT DATE: 201808
